FAERS Safety Report 13490525 (Version 2)
Quarter: 2017Q2

REPORT INFORMATION
  Report Type: Report from Study
  Country: US (occurrence: US)
  Receive Date: 20170427
  Receipt Date: 20170505
  Transmission Date: 20170830
  Serious: Yes (Hospitalization, Other)
  Sender: FDA-Public Use
  Company Number: US-ROCHE-1855650

PATIENT
  Age: 64 Year
  Sex: Male
  Weight: 63.5 kg

DRUGS (8)
  1. LENALIDOMIDE [Suspect]
     Active Substance: LENALIDOMIDE
     Indication: DIFFUSE LARGE B-CELL LYMPHOMA
     Dosage: STARTING DOSE LEVEL: 15 MG BY MOUTH ON DAYS 1 - 14 OF EACH 21 DAY CYCLE.?PHASE II STARTING DOSE LEVE
     Route: 048
  2. OBINUTUZUMAB [Suspect]
     Active Substance: OBINUTUZUMAB
     Indication: DIFFUSE LARGE B-CELL LYMPHOMA
     Dosage: I AND II: 1000 MG BY VEIN ON DAYS 1, 8, AND 15 OF CYCLE 1 AND DAY 1 OF CYCLES 2 - 6.
     Route: 042
  3. VINCRISTINE [Suspect]
     Active Substance: VINCRISTINE
     Indication: DIFFUSE LARGE B-CELL LYMPHOMA
     Dosage: PHASE I AND II: 1.4 MG/M2 BY VEIN ON DAY 1 OF ALL CYCLES.
     Route: 042
  4. PREDNISONE. [Suspect]
     Active Substance: PREDNISONE
     Indication: DIFFUSE LARGE B-CELL LYMPHOMA
     Dosage: CYCLE 1, DAY 11?PHASE I AND II: 100 MG BY MOUTH DAILY ON DAYS 1 - 5 OF EACH 21 DAY CYCLE.
     Route: 048
  5. NEULASTA [Concomitant]
     Active Substance: PEGFILGRASTIM
     Route: 058
     Dates: start: 20161018
  6. CYCLOPHOSPHAMIDE. [Suspect]
     Active Substance: CYCLOPHOSPHAMIDE
     Indication: DIFFUSE LARGE B-CELL LYMPHOMA
     Dosage: PHASE I AND II: 750 MG/M2 VEIN OVER ABOUT 1 HOUR ON DAY 1 OF ALL CYCLES.
     Route: 042
  7. DOXORUBICIN [Suspect]
     Active Substance: DOXORUBICIN
     Indication: DIFFUSE LARGE B-CELL LYMPHOMA
     Dosage: PHASE I AND II: 50 MG/M2 BY VEIN OVER ABOUT 15 MINUTES EACH ON DAY 1 OF ALL CYCLES
     Route: 042
  8. LENALIDOMIDE [Suspect]
     Active Substance: LENALIDOMIDE
     Dosage: CYCLE 1 DAY 11
     Route: 048

REACTIONS (4)
  - Febrile neutropenia [Recovered/Resolved]
  - Metapneumovirus infection [Recovered/Resolved]
  - Immune system disorder [Recovered/Resolved]
  - Nausea [Recovered/Resolved]

NARRATIVE: CASE EVENT DATE: 20161018
